FAERS Safety Report 6704530-9 (Version None)
Quarter: 2010Q2

REPORT INFORMATION
  Report Type: 
  Country: None (occurrence: None)
  Receive Date: 20100430
  Receipt Date: 20100420
  Transmission Date: 20101027
  Serious: Yes (Other)
  Sender: FDA-Public Use
  Company Number: PHEH2010US02936

PATIENT
  Sex: Male

DRUGS (2)
  1. GLEEVEC [Suspect]
     Indication: CHRONIC MYELOID LEUKAEMIA
     Dosage: 400 MG DAILY
     Route: 048
     Dates: start: 20030101
  2. MULTIVITAMIN PREPARATIONS WITH OR W/O MINERAL [Concomitant]

REACTIONS (11)
  - ARTHRALGIA [None]
  - LYMPH NODE CALCIFICATION [None]
  - LYMPHADENECTOMY [None]
  - LYMPHADENOPATHY [None]
  - MUSCLE SPASMS [None]
  - NEOPLASM MALIGNANT [None]
  - RADICAL NECK DISSECTION [None]
  - STEM CELL TRANSPLANT [None]
  - THYROID CANCER [None]
  - THYROID MASS [None]
  - THYROIDECTOMY [None]
